FAERS Safety Report 24860683 (Version 1)
Quarter: 2025Q1

REPORT INFORMATION
  Report Type: Report from Study
  Country: ZA (occurrence: ZA)
  Receive Date: 20250120
  Receipt Date: 20250120
  Transmission Date: 20250409
  Serious: Yes (Other)
  Sender: SANDOZ
  Company Number: ZA-SANDOZ-SDZ2023ZA050794

PATIENT
  Age: 62 Year
  Sex: Female

DRUGS (1)
  1. ERELZI [Suspect]
     Active Substance: ETANERCEPT-SZZS
     Indication: Rheumatoid arthritis
     Dosage: 50 MG ONCE A WEEK
     Route: 058
     Dates: start: 20231020

REACTIONS (6)
  - Lymphadenopathy [Unknown]
  - Axillary mass [Unknown]
  - Breast discomfort [Unknown]
  - Tongue pigmentation [Unknown]
  - Ocular hyperaemia [Not Recovered/Not Resolved]
  - Headache [Not Recovered/Not Resolved]

NARRATIVE: CASE EVENT DATE: 20231027
